FAERS Safety Report 9594070 (Version 1)
Quarter: 2013Q3

REPORT INFORMATION
  Report Type: Spontaneous
  Country: US (occurrence: None)
  Receive Date: 20130930
  Receipt Date: 20130930
  Transmission Date: 20140515
  Serious: No
  Sender: FDA-Public Use
  Company Number: 1000047657

PATIENT
  Age: 79 Year
  Sex: Female

DRUGS (9)
  1. LINZESS (LINACLOTIDE) (145 MICROGRAM, CAPSULES) [Suspect]
     Indication: CONSTIPATION
     Dosage: 145 MCG (145 MCG, 1 IN 1 D), ORAL
     Route: 048
     Dates: start: 20130807
  2. ADVAIR (SERETIDE) (SERETIDE) [Concomitant]
  3. FLONASE (FLUTICASONE PROPIONATE) (FLUTICASONE PROPIONATE) [Concomitant]
  4. VIT D (ERGOCALCIFEROL) (ERGOCALCIFEROL) [Concomitant]
  5. LEVOTHROXINE (LEVOTHYROXINE SODIUM) (LEVOTHYROXINE SODIUM)? [Concomitant]
  6. DUONEB (COMBIVENT) (COMBIVENT) [Concomitant]
  7. OMPERAZOLE (OMPERAZOLE) (OMEPRAZOLE) [Concomitant]
  8. VENTOLIN HFA (SALBUTOMAL SULFATE) (SALBUTOMAL SULFATE) [Concomitant]
  9. PREDNISONE (PREDNISONE) (PREDNISONE) [Concomitant]

REACTIONS (1)
  - Drug ineffective [None]
